FAERS Safety Report 18328119 (Version 2)
Quarter: 2020Q4

REPORT INFORMATION
  Report Type: Report from Study
  Country: None (occurrence: CA)
  Receive Date: 20200929
  Receipt Date: 20201007
  Transmission Date: 20210113
  Serious: No
  Sender: FDA-Public Use
  Company Number: CA-ABBVIE-20K-028-3585413-00

PATIENT
  Sex: Female

DRUGS (1)
  1. SKYRIZI [Suspect]
     Active Substance: RISANKIZUMAB-RZAA
     Indication: PSORIASIS
     Route: 058
     Dates: start: 20190718

REACTIONS (3)
  - Musculoskeletal stiffness [Unknown]
  - Medical device site discomfort [Unknown]
  - Medical device site warmth [Unknown]

NARRATIVE: CASE EVENT DATE: 2020
